FAERS Safety Report 6979805-9 (Version None)
Quarter: 2010Q3

REPORT INFORMATION
  Report Type: 
  Country: None (occurrence: None)
  Receive Date: 20100914
  Receipt Date: 20100903
  Transmission Date: 20110219
  Serious: No
  Sender: FDA-Public Use
  Company Number: US-BIOGENIDEC-2010BI017703

PATIENT
  Age: 55 Year
  Sex: Female

DRUGS (2)
  1. TYSABRI [Suspect]
     Indication: MULTIPLE SCLEROSIS
     Route: 042
     Dates: start: 20091203, end: 20100101
  2. TYSABRI [Suspect]
     Route: 042
     Dates: start: 20100101

REACTIONS (3)
  - ALOPECIA [None]
  - CHROMATURIA [None]
  - FATIGUE [None]
